FAERS Safety Report 4767819-9 (Version None)
Quarter: 2005Q3

REPORT INFORMATION
  Report Type: 
  Country: None (occurrence: None)
  Receive Date: 20050913
  Receipt Date: 20050825
  Transmission Date: 20060218
  Serious: Yes (Hospitalization)
  Sender: FDA-Public Use
  Company Number: DSA_26922_2005

PATIENT
  Age: 64 Year
  Sex: Female
  Weight: 51.7101 kg

DRUGS (4)
  1. ATIVAN [Suspect]
     Indication: BIPOLAR DISORDER
     Dosage: 0.5 MG BID
  2. CLOZAPINE [Suspect]
     Indication: BIPOLAR DISORDER
     Dosage: 12.5 MG Q DAY PO
     Route: 048
     Dates: start: 20040201, end: 20050603
  3. CLOZAPINE [Suspect]
     Indication: PSYCHOTIC DISORDER
     Dosage: 12.5 MG Q DAY PO
     Route: 048
     Dates: start: 20040201, end: 20050603
  4. TRAZODONE [Suspect]
     Indication: SOMNOLENCE
     Dosage: 50 MG QHS PO
     Route: 048

REACTIONS (5)
  - BLOOD PRESSURE DECREASED [None]
  - INCORRECT DOSE ADMINISTERED [None]
  - SINUS BRADYCARDIA [None]
  - SOMNOLENCE [None]
  - WHITE BLOOD CELL COUNT DECREASED [None]
